FAERS Safety Report 8083009-9 (Version None)
Quarter: 2012Q1

REPORT INFORMATION
  Report Type: 
  Country: None (occurrence: None)
  Receive Date: 20120127
  Receipt Date: 20110310
  Transmission Date: 20120608
  Serious: No
  Sender: FDA-Public Use
  Company Number: US-ABBOTT-11P-163-0710586-00

PATIENT
  Sex: Female
  Weight: 110.78 kg

DRUGS (1)
  1. HUMIRA [Suspect]
     Indication: HIDRADENITIS
     Dates: start: 20101004, end: 20110209

REACTIONS (3)
  - ARTHRALGIA [None]
  - FATIGUE [None]
  - ASTHENIA [None]
